FAERS Safety Report 25637990 (Version 1)
Quarter: 2025Q3

REPORT INFORMATION
  Report Type: Spontaneous
  Country: EU (occurrence: EU)
  Receive Date: 20250804
  Receipt Date: 20250804
  Transmission Date: 20251020
  Serious: Yes (Other)
  Sender: PFIZER
  Company Number: EU-BRISTOL-MYERS SQUIBB COMPANY-2025-104470

PATIENT
  Age: 48 Year
  Sex: Male

DRUGS (3)
  1. SUNITINIB MALATE [Suspect]
     Active Substance: SUNITINIB MALATE
     Indication: Clear cell renal cell carcinoma
  2. NIVOLUMAB [Suspect]
     Active Substance: NIVOLUMAB
     Indication: Clear cell renal cell carcinoma
  3. NELVUTAMIG [Suspect]
     Active Substance: NELVUTAMIG
     Indication: Clear cell renal cell carcinoma

REACTIONS (3)
  - Immune thrombocytopenia [Recovered/Resolved]
  - Clear cell renal cell carcinoma [Unknown]
  - Malignant neoplasm progression [Unknown]
